FAERS Safety Report 9520187 (Version 1)
Quarter: 2013Q3

REPORT INFORMATION
  Report Type: Spontaneous
  Country: US (occurrence: US)
  Receive Date: 20130912
  Receipt Date: 20130912
  Transmission Date: 20140515
  Serious: Yes (Other)
  Sender: FDA-Public Use
  Company Number: US-MUTUAL PHARMACEUTICAL COMPANY, INC.-BCTM20120075

PATIENT
  Sex: Male

DRUGS (9)
  1. BACTRIM TABLETS [Suspect]
     Indication: INFECTION
     Route: 065
  2. ULORIC [Suspect]
     Indication: GOUT
     Route: 048
  3. ULORIC [Suspect]
     Route: 048
  4. CADUET [Concomitant]
     Indication: PRODUCT USED FOR UNKNOWN INDICATION
     Route: 065
  5. SINGULAIR [Concomitant]
     Indication: PRODUCT USED FOR UNKNOWN INDICATION
     Route: 065
  6. DEMADEX [Concomitant]
     Indication: OEDEMA
     Route: 048
     Dates: end: 20121108
  7. DEMADEX [Concomitant]
     Route: 048
     Dates: end: 20121113
  8. COLBENEMID [Concomitant]
     Indication: PRODUCT USED FOR UNKNOWN INDICATION
     Route: 065
  9. LOSARTIN [Concomitant]
     Indication: PRODUCT USED FOR UNKNOWN INDICATION
     Route: 065

REACTIONS (2)
  - Renal failure [Recovering/Resolving]
  - Oedema [Unknown]
